FAERS Safety Report 6172005-4 (Version None)
Quarter: 2009Q2

REPORT INFORMATION
  Report Type: 
  Country: None (occurrence: None)
  Receive Date: 20090429
  Receipt Date: 20090427
  Transmission Date: 20091009
  Serious: Yes (Other)
  Sender: FDA-Public Use
  Company Number: AU-BRISTOL-MYERS SQUIBB COMPANY-14603062

PATIENT
  Age: 66 Year
  Sex: Male

DRUGS (4)
  1. PRAVASTATINE TABS [Suspect]
     Dosage: PRAVASTATIN SODIUM; FORMULATION :TABLET
     Route: 048
     Dates: start: 20061215
  2. FENOFIBRATE [Suspect]
     Dosage: FORM TABS
     Route: 048
     Dates: start: 20061215, end: 20070303
  3. MONOPLUS TABS 20 MG/12.5 MG [Suspect]
     Dosage: 1 DOSAGE FORM = 1 DOSE
     Route: 048
     Dates: end: 20070303
  4. DILTIAZEM HCL [Suspect]
     Dosage: FORMULATION: CAPSULE
     Route: 048
     Dates: end: 20070303

REACTIONS (2)
  - ACUTE MYOCARDIAL INFARCTION [None]
  - LIVER FUNCTION TEST ABNORMAL [None]
